FAERS Safety Report 21174884 (Version 1)
Quarter: 2022Q3

REPORT INFORMATION
  Report Type: Spontaneous
  Country: US (occurrence: None)
  Receive Date: 20220805
  Receipt Date: 20220805
  Transmission Date: 20221027
  Serious: No
  Sender: FDA-Public Use
  Company Number: US-ROCHE-2965895

PATIENT
  Sex: Female
  Weight: 70.76 kg

DRUGS (2)
  1. BONIVA [Suspect]
     Active Substance: IBANDRONATE SODIUM
     Indication: Product used for unknown indication
     Route: 065
     Dates: start: 20210122
  2. COVID-19 VACCINE NOS [Suspect]
     Active Substance: COVID-19 VACCINE NOS
     Indication: COVID-19
     Dosage: UNKNOWN, RIGHT ARM
     Route: 065
     Dates: start: 20210122

REACTIONS (1)
  - Hypersensitivity [Unknown]
